FAERS Safety Report 18282267 (Version 16)
Quarter: 2023Q1

REPORT INFORMATION
  Report Type: Spontaneous
  Country: IN (occurrence: IN)
  Receive Date: 20200918
  Receipt Date: 20230106
  Transmission Date: 20230418
  Serious: Yes (Other)
  Sender: FDA-Public Use
  Company Number: IN-PFIZER INC-2020003583

PATIENT
  Age: 57 Year
  Sex: Male

DRUGS (1)
  1. SUTENT [Suspect]
     Active Substance: SUNITINIB MALATE
     Indication: Metastatic renal cell carcinoma
     Dosage: 50 MG, CYCLIC (ONCE DAILY, 2 WEEKS ON AND 1 WEEK OFF)
     Route: 048
     Dates: start: 20190418

REACTIONS (17)
  - Encephalomalacia [Unknown]
  - Hypothyroidism [Unknown]
  - Vomiting [Unknown]
  - Otitis media chronic [Not Recovered/Not Resolved]
  - Weight increased [Recovering/Resolving]
  - Gliosis [Unknown]
  - Ear pain [Not Recovered/Not Resolved]
  - Influenza [Unknown]
  - Blood pressure increased [Unknown]
  - Malaise [Unknown]
  - Illness [Unknown]
  - Blood creatinine increased [Unknown]
  - Protein urine present [Unknown]
  - General physical health deterioration [Unknown]
  - Haemoglobin decreased [Unknown]
  - Calcium ionised increased [Unknown]
  - Blood albumin decreased [Unknown]

NARRATIVE: CASE EVENT DATE: 20201216
